FAERS Safety Report 8960924 (Version 1)
Quarter: 2012Q4

REPORT INFORMATION
  Report Type: Spontaneous
  Country: US (occurrence: None)
  Receive Date: 20121211
  Receipt Date: 20121211
  Transmission Date: 20130627
  Serious: No
  Sender: FDA-Public Use
  Company Number: None

PATIENT
  Age: 22 Year
  Sex: Male

DRUGS (2)
  1. CITALOPRAM [Suspect]
     Indication: AUTISM
     Route: 048
     Dates: start: 2011
  2. ESCITALOPRAM [Suspect]
     Indication: ANXIETY
     Route: 048
     Dates: start: 2011

REACTIONS (4)
  - Agitation [None]
  - Impaired work ability [None]
  - Vision blurred [None]
  - Drug ineffective [None]
